FAERS Safety Report 9788721 (Version 2)
Quarter: 2014Q1

REPORT INFORMATION
  Report Type: Spontaneous
  Country: US (occurrence: US)
  Receive Date: 20131230
  Receipt Date: 20140115
  Transmission Date: 20141002
  Serious: Yes (Hospitalization)
  Sender: FDA-Public Use
  Company Number: US-ASTRAZENECA-2013SE93196

PATIENT
  Sex: Female

DRUGS (5)
  1. SYNAGIS [Suspect]
     Route: 030
  2. SYNAGIS [Suspect]
     Dosage: 50 MG/0.5 ML VL LIQUID, 15 MG/KG EVERY 28-30 DAYS
     Route: 030
     Dates: start: 201310
  3. AUGMENTIN [Concomitant]
  4. METHADONE [Concomitant]
  5. ATIVAN [Concomitant]

REACTIONS (1)
  - Procedural complication [Unknown]
